FAERS Safety Report 11866131 (Version 2)
Quarter: 2017Q1

REPORT INFORMATION
  Report Type: Report from Study
  Country: US (occurrence: US)
  Receive Date: 20151223
  Receipt Date: 20170201
  Transmission Date: 20170428
  Serious: No
  Sender: FDA-Public Use
  Company Number: US-EXELIXIS-CABO-15005662

PATIENT
  Age: 79 Year
  Sex: Male

DRUGS (3)
  1. COMETRIQ [Suspect]
     Active Substance: CABOZANTINIB S-MALATE
     Dosage: 60 MG, QD
     Route: 048
     Dates: start: 201511
  2. COMETRIQ [Suspect]
     Active Substance: CABOZANTINIB S-MALATE
     Indication: THYROID CANCER
     Dosage: 140 MG, QD
     Route: 048
     Dates: start: 20150828, end: 201509
  3. COMETRIQ [Suspect]
     Active Substance: CABOZANTINIB S-MALATE
     Dosage: 100 MG, QD
     Route: 048
     Dates: start: 20151007, end: 201511

REACTIONS (20)
  - Mass [Unknown]
  - Fatigue [Unknown]
  - Diarrhoea [Recovering/Resolving]
  - Somnolence [Not Recovered/Not Resolved]
  - Headache [Unknown]
  - Blister [Recovering/Resolving]
  - Skin exfoliation [Unknown]
  - Pollakiuria [Unknown]
  - Memory impairment [Not Recovered/Not Resolved]
  - Ageusia [Recovering/Resolving]
  - Dizziness [Unknown]
  - Coating in mouth [Recovered/Resolved]
  - Tooth extraction [Unknown]
  - Inflammation [Unknown]
  - Weight increased [Unknown]
  - Drug intolerance [Unknown]
  - Oropharyngeal pain [Recovered/Resolved]
  - Dysphonia [Unknown]
  - Blood pressure increased [Recovered/Resolved]
  - Tonsillar hypertrophy [Recovering/Resolving]

NARRATIVE: CASE EVENT DATE: 20150906
